FAERS Safety Report 7002886-3 (Version None)
Quarter: 2010Q3

REPORT INFORMATION
  Report Type: 
  Country: None (occurrence: None)
  Receive Date: 20100920
  Receipt Date: 20100909
  Transmission Date: 20110219
  Serious: Yes (Other)
  Sender: FDA-Public Use
  Company Number: US-WYE-H16522310

PATIENT
  Sex: Male
  Weight: 151.64 kg

DRUGS (2)
  1. DESVENLAFAXINE SUCCINATE MONOHYDRATE [Suspect]
     Indication: MAJOR DEPRESSION
     Route: 048
     Dates: start: 20100514, end: 20100727
  2. TYLENOL [Concomitant]
     Indication: HEADACHE
     Dosage: 1000 MG AS NEEDED
     Dates: start: 20100522

REACTIONS (2)
  - DYSPNOEA [None]
  - MUSCLE TWITCHING [None]
